FAERS Safety Report 11108417 (Version 1)
Quarter: 2015Q2

REPORT INFORMATION
  Report Type: Spontaneous
  Country: US (occurrence: US)
  Receive Date: 20150512
  Receipt Date: 20150512
  Transmission Date: 20150821
  Serious: Yes (Other)
  Sender: FDA-Public Use
  Company Number: US-AMGEN-USASP2015004036

PATIENT
  Age: 62 Year
  Sex: Female

DRUGS (2)
  1. VECTIBIX [Suspect]
     Active Substance: PANITUMUMAB
     Indication: COLORECTAL CANCER METASTATIC
     Dosage: UNK
     Route: 065
     Dates: start: 201501
  2. DOXYCYCLINE. [Concomitant]
     Active Substance: DOXYCYCLINE
     Dosage: UNK

REACTIONS (24)
  - Nausea [Recovering/Resolving]
  - Dyspnoea [Recovering/Resolving]
  - Neoplasm [Unknown]
  - Peripheral swelling [Not Recovered/Not Resolved]
  - Eye irritation [Recovering/Resolving]
  - Gastrooesophageal reflux disease [Recovering/Resolving]
  - Rash [Not Recovered/Not Resolved]
  - Anxiety [Recovering/Resolving]
  - Cough [Recovering/Resolving]
  - Growth of eyelashes [Not Recovered/Not Resolved]
  - Eyelid disorder [Recovering/Resolving]
  - Headache [Recovering/Resolving]
  - Chills [Recovering/Resolving]
  - Skin exfoliation [Unknown]
  - Abdominal pain [Recovering/Resolving]
  - Pruritus [Recovering/Resolving]
  - Erythema [Not Recovered/Not Resolved]
  - Limb injury [Recovered/Resolved]
  - Fatigue [Recovering/Resolving]
  - Weight increased [Not Recovered/Not Resolved]
  - Localised infection [Recovered/Resolved]
  - Vision blurred [Recovering/Resolving]
  - Hair colour changes [Not Recovered/Not Resolved]
  - Limb discomfort [Unknown]

NARRATIVE: CASE EVENT DATE: 2015
